FAERS Safety Report 5271512-6 (Version None)
Quarter: 2007Q1

REPORT INFORMATION
  Report Type: 
  Country: None (occurrence: None)
  Receive Date: 20070316
  Receipt Date: 20070305
  Transmission Date: 20070707
  Serious: Yes (Hospitalization, Other)
  Sender: FDA-Public Use
  Company Number: 2007SP004255

PATIENT
  Age: 45 Year
  Sex: Female

DRUGS (10)
  1. PEG-INTRON [Suspect]
     Indication: HEPATITIS C
     Dosage: SC
     Route: 058
     Dates: start: 20060320, end: 20060403
  2. RIBASPHERE [Suspect]
     Indication: HEPATITIS C
     Dosage: PO
     Route: 048
     Dates: start: 20060320, end: 20060403
  3. CYMBALTA [Concomitant]
  4. DEPO PROVERA /00115201/ [Concomitant]
  5. KLONOPIN [Concomitant]
  6. ACETAMINOPHEN AND OXYCODONE HCL [Concomitant]
  7. OXYCONTIN [Concomitant]
  8. RESTORIL [Concomitant]
  9. SOMA [Concomitant]
  10. ZOLOFT [Concomitant]

REACTIONS (7)
  - ANGER [None]
  - CONVULSION [None]
  - FOOT FRACTURE [None]
  - GUILLAIN-BARRE SYNDROME [None]
  - LOSS OF CONSCIOUSNESS [None]
  - MEMORY IMPAIRMENT [None]
  - PAIN [None]
